FAERS Safety Report 12119667 (Version 1)
Quarter: 2016Q1

REPORT INFORMATION
  Report Type: Spontaneous
  Country: GB (occurrence: GB)
  Receive Date: 20160226
  Receipt Date: 20160226
  Transmission Date: 20160526
  Serious: Yes (Disabling)
  Sender: FDA-Public Use
  Company Number: GB-TEVA-636477ACC

PATIENT
  Age: 37 Year
  Sex: Female
  Weight: 53 kg

DRUGS (1)
  1. AMOXICILLIN. [Suspect]
     Active Substance: AMOXICILLIN
     Dates: start: 20160210

REACTIONS (2)
  - Hallucination [Unknown]
  - Malaise [Unknown]

NARRATIVE: CASE EVENT DATE: 20160210
